FAERS Safety Report 13980978 (Version 1)
Quarter: 2017Q3

REPORT INFORMATION
  Report Type: Spontaneous
  Country: US (occurrence: PR)
  Receive Date: 20170918
  Receipt Date: 20170918
  Transmission Date: 20171128
  Serious: No
  Sender: FDA-Public Use
  Company Number: US-TEVA-759745ACC

PATIENT
  Age: 67 Year
  Sex: Female
  Weight: 79.82 kg

DRUGS (1)
  1. FEXOFENADINE 180 MG 571 [Suspect]
     Active Substance: FEXOFENADINE HYDROCHLORIDE
     Indication: SEASONAL ALLERGY
     Dosage: 180 MILLIGRAM DAILY; 180 MG, SINGLE
     Route: 048
     Dates: start: 20170329, end: 20170329

REACTIONS (2)
  - Abdominal discomfort [Not Recovered/Not Resolved]
  - Drug administered to patient of inappropriate age [Unknown]

NARRATIVE: CASE EVENT DATE: 20170329
